FAERS Safety Report 7625245-9 (Version None)
Quarter: 2011Q3

REPORT INFORMATION
  Report Type: 
  Country: None (occurrence: None)
  Receive Date: 20110713
  Receipt Date: 20110630
  Transmission Date: 20111222
  Serious: Yes (Other)
  Sender: FDA-Public Use
  Company Number: OMPQ-NO-1107S-0631

PATIENT
  Age: 67 Year
  Sex: Female

DRUGS (1)
  1. OMNIPAQUE 70 [Suspect]
     Indication: PRODUCT USED FOR UNKNOWN INDICATION
     Dosage: SINGLE DOSE, INTRAVENOUS
     Route: 042
     Dates: start: 20110531, end: 20110531

REACTIONS (2)
  - OEDEMA PERIPHERAL [None]
  - INJECTION SITE PAIN [None]
